FAERS Safety Report 17195804 (Version 1)
Quarter: 2019Q4

REPORT INFORMATION
  Report Type: Report from Study
  Country: US (occurrence: US)
  Receive Date: 20191224
  Receipt Date: 20191224
  Transmission Date: 20200122
  Serious: Yes (Hospitalization)
  Sender: FDA-Public Use
  Company Number: NVSC2019US070960

PATIENT
  Age: 56 Year
  Sex: Female
  Weight: 131.54 kg

DRUGS (2)
  1. GSK2118436 [Suspect]
     Active Substance: DABRAFENIB
     Indication: MALIGNANT MELANOMA
     Dosage: 150 MG, BID
     Route: 048
     Dates: start: 20190919, end: 20190921
  2. GSK1120212 [Suspect]
     Active Substance: TRAMETINIB
     Indication: MALIGNANT MELANOMA
     Dosage: 2 MG, QD
     Route: 048
     Dates: start: 20190919, end: 20190920

REACTIONS (3)
  - Back pain [Unknown]
  - Intra-abdominal haemorrhage [Unknown]
  - Flank pain [Unknown]

NARRATIVE: CASE EVENT DATE: 20190920
